FAERS Safety Report 9065809 (Version 1)
Quarter: 2013Q1

REPORT INFORMATION
  Report Type: Report from Study
  Country: US (occurrence: US)
  Receive Date: 20130131
  Receipt Date: 20130131
  Transmission Date: 20140127
  Serious: No
  Sender: FDA-Public Use
  Company Number: US-ABBOTT-12P-163-0991185-00

PATIENT
  Age: 57 Year
  Sex: Male

DRUGS (6)
  1. HUMIRA [Suspect]
     Indication: CROHN^S DISEASE
     Dates: start: 2007
  2. HUMIRA [Suspect]
     Dosage: LOADING DOSE
     Dates: start: 20121008, end: 20121008
  3. HUMIRA [Suspect]
     Dates: start: 20121101, end: 20121101
  4. HUMIRA [Suspect]
  5. HUMIRA [Suspect]
     Dates: start: 20121213
  6. PREDNISONE [Concomitant]
     Indication: CROHN^S DISEASE
     Dates: start: 2004

REACTIONS (9)
  - Blood pressure increased [Not Recovered/Not Resolved]
  - Pain [Not Recovered/Not Resolved]
  - Fibromyalgia [Not Recovered/Not Resolved]
  - Arthritis [Not Recovered/Not Resolved]
  - Hepatitis C [Not Recovered/Not Resolved]
  - Crohn^s disease [Not Recovered/Not Resolved]
  - Back pain [Not Recovered/Not Resolved]
  - Fatigue [Not Recovered/Not Resolved]
  - Weight decreased [Not Recovered/Not Resolved]
